FAERS Safety Report 9818962 (Version 2)
Quarter: 2014Q1

REPORT INFORMATION
  Report Type: Spontaneous
  Country: US (occurrence: US)
  Receive Date: 20140115
  Receipt Date: 20140205
  Transmission Date: 20141002
  Serious: No
  Sender: FDA-Public Use
  Company Number: US-GILEAD-2014-0091882

PATIENT
  Sex: Male
  Weight: 79 kg

DRUGS (4)
  1. COMPLERA [Suspect]
     Indication: PRODUCT USED FOR UNKNOWN INDICATION
     Dosage: 1 UNK, UNK
     Route: 048
     Dates: start: 20130510
  2. PROPRANOLOL [Concomitant]
     Dosage: 20 MG, PRN
     Dates: start: 20131219
  3. TRAZODONE [Concomitant]
     Dosage: 50 MG, UNK
     Route: 048
     Dates: start: 20120621
  4. CHOLECALCIFEROL [Concomitant]
     Dosage: UNK DF, UNK
     Route: 048
     Dates: start: 20121217

REACTIONS (5)
  - Stomatitis [Unknown]
  - Oral disorder [Unknown]
  - Tongue ulceration [Unknown]
  - Skin ulcer [Unknown]
  - Incorrect product storage [Unknown]
